FAERS Safety Report 16624458 (Version 4)
Quarter: 2019Q4

REPORT INFORMATION
  Report Type: Report from Study
  Country: CA (occurrence: CA)
  Receive Date: 20190724
  Receipt Date: 20191224
  Transmission Date: 20200122
  Serious: Yes (Other)
  Sender: FDA-Public Use
  Company Number: CA-HORIZON-RAV-0156-2019

PATIENT
  Age: 41 Year
  Sex: Male
  Weight: 84.4 kg

DRUGS (10)
  1. RISPERIDONE. [Concomitant]
     Active Substance: RISPERIDONE
     Dosage: 2MG AT BED TIME (QHS)
  2. CALCIUM [Concomitant]
     Active Substance: CALCIUM
     Dosage: OD
  3. RAVICTI [Suspect]
     Active Substance: GLYCEROL PHENYLBUTYRATE
     Indication: UREA CYCLE DISORDER
     Dosage: 3.5ML TID
     Route: 048
     Dates: start: 20190531, end: 20190731
  4. CENTRUM [Concomitant]
     Active Substance: VITAMINS
     Dosage: OD
  5. KEPPRA [Concomitant]
     Active Substance: LEVETIRACETAM
     Dosage: 500MG BID
  6. OMEGA 3, 6 AND 9 [Concomitant]
     Dosage: OD
  7. ZINC. [Concomitant]
     Active Substance: ZINC
     Dosage: OD
  8. CITRULLINE [Concomitant]
     Active Substance: CITRULLINE
     Dosage: TID
     Dates: start: 201905
  9. CREATINE MONOHYDRATE [Concomitant]
     Active Substance: CREATINE MONOHYDRATE
     Dosage: BID
  10. VITAMIN D [Concomitant]
     Active Substance: VITAMIN D NOS
     Dosage: OD

REACTIONS (17)
  - Product dose omission [Recovered/Resolved]
  - Hepatic enzyme increased [Not Recovered/Not Resolved]
  - Frequent bowel movements [Unknown]
  - Amino acid level increased [Unknown]
  - Lactose intolerance [Not Recovered/Not Resolved]
  - Fatigue [Unknown]
  - Diarrhoea [Unknown]
  - Intentional product use issue [Unknown]
  - Weight decreased [Not Recovered/Not Resolved]
  - Treatment noncompliance [Unknown]
  - Amino acid level decreased [Unknown]
  - Hypophagia [Recovering/Resolving]
  - Anxiety [Unknown]
  - Abdominal pain [Recovering/Resolving]
  - Decreased appetite [Unknown]
  - Abdominal discomfort [Recovering/Resolving]
  - Haematochezia [Recovered/Resolved]

NARRATIVE: CASE EVENT DATE: 20190531
